FAERS Safety Report 7293308-6 (Version None)
Quarter: 2011Q1

REPORT INFORMATION
  Report Type: 
  Country: None (occurrence: None)
  Receive Date: 20110215
  Receipt Date: 20110204
  Transmission Date: 20110831
  Serious: Yes (Other)
  Sender: FDA-Public Use
  Company Number: US-ROCHE-477307

PATIENT
  Sex: Female
  Weight: 49 kg

DRUGS (9)
  1. ACCUTANE [Suspect]
     Indication: ACNE
     Dosage: STRENGTH REPORTED AS 10 MG - 60 MG. DOSAGE  REPORTED AS VARIABLE.
     Route: 048
     Dates: start: 20001111, end: 20010401
  2. ORTHO TRI-CYCLEN LO [Concomitant]
  3. DESOXYMETHASONE [Concomitant]
     Dosage: REPORTED AS: DESOXIMETHASONE; DOSAGE REGIMEN REPORTED AS: BID.
     Route: 061
     Dates: start: 20020112
  4. AQUAPHOR [Concomitant]
     Indication: ACNE
     Dates: start: 20001204
  5. ACCUTANE [Suspect]
     Dosage: STRENGTH + FORMULATION REPORTED AS: 40 MG; DOSAGE REGIMEN REPORTED AS: DAILY.
     Route: 048
  6. CETAPHIL [Concomitant]
     Indication: ACNE
     Dosage: DRUG REPORTED AS CETAPHIL CR W/SPF 15.
     Dates: start: 20001204
  7. PROTOPIC [Concomitant]
     Dosage: DOSAGE REGIMEN REPORTED AS: BID.
     Route: 061
     Dates: start: 20011110
  8. ACCUTANE [Suspect]
     Dosage: STRENGTH + FORMULATION REPORTED AS: 50 MG; DOSAGE REGIMEN REPORTED AS: DAILY.
     Route: 048
     Dates: start: 20011113, end: 20020415
  9. ACCUTANE [Suspect]
     Dosage: STRENGTH + FORMULATION REPORTED AS: 50-60 MG; DOSAGE REGIMEN REPORTED AS: AS DIRECTED.
     Route: 048
     Dates: start: 20020205

REACTIONS (21)
  - INFLAMMATORY BOWEL DISEASE [None]
  - PROCTOCOLITIS [None]
  - GAIT DISTURBANCE [None]
  - BLOOD TRIGLYCERIDES INCREASED [None]
  - IRRITABLE BOWEL SYNDROME [None]
  - INJURY [None]
  - HEPATIC ENZYME INCREASED [None]
  - FOOT DEFORMITY [None]
  - DRY SKIN [None]
  - COLITIS [None]
  - ABDOMINAL PAIN [None]
  - PROCTITIS [None]
  - ARTHRITIS [None]
  - POLYP [None]
  - TENDONITIS [None]
  - COLITIS ULCERATIVE [None]
  - EMOTIONAL DISTRESS [None]
  - RECTAL HAEMORRHAGE [None]
  - LIP DRY [None]
  - BLOOD CHOLESTEROL INCREASED [None]
  - DIZZINESS [None]
